FAERS Safety Report 11746583 (Version 1)
Quarter: 2015Q4

REPORT INFORMATION
  Report Type: Report from Study
  Country: US (occurrence: US)
  Receive Date: 20151117
  Receipt Date: 20151117
  Transmission Date: 20160304
  Serious: Yes (Other)
  Sender: FDA-Public Use
  Company Number: US-JNJFOC-20151110535

PATIENT
  Age: 44 Year
  Sex: Female

DRUGS (17)
  1. CHLORDIAZEPOXIDE [Concomitant]
     Active Substance: CHLORDIAZEPOXIDE
     Indication: IRRITABLE BOWEL SYNDROME
     Dosage: 5/2.5MG, EVERY 8 HOURS 4 TIMES DAILY
     Route: 065
     Dates: start: 2011, end: 201509
  2. AMITRIPTYLINE [Concomitant]
     Active Substance: AMITRIPTYLINE
     Indication: IRRITABLE BOWEL SYNDROME
     Route: 065
     Dates: start: 2014, end: 201510
  3. LINZESS [Concomitant]
     Active Substance: LINACLOTIDE
     Indication: IRRITABLE BOWEL SYNDROME
     Route: 065
     Dates: start: 201506
  4. XARELTO [Suspect]
     Active Substance: RIVAROXABAN
     Indication: DEEP VEIN THROMBOSIS
     Route: 048
     Dates: start: 201402
  5. AMBIEN [Concomitant]
     Active Substance: ZOLPIDEM TARTRATE
     Indication: ANXIETY
     Dosage: ONCE DAILY AT BED TIME
     Route: 065
     Dates: start: 201507
  6. ALPRAZOLAM. [Concomitant]
     Active Substance: ALPRAZOLAM
     Indication: ANXIETY
     Route: 065
  7. OXYCODONE [Concomitant]
     Active Substance: OXYCODONE
     Indication: PAIN
     Route: 065
     Dates: start: 2005
  8. DICYCLOMINE HCL [Concomitant]
     Active Substance: DICYCLOMINE HYDROCHLORIDE
     Indication: IRRITABLE BOWEL SYNDROME
     Route: 065
  9. XARELTO [Suspect]
     Active Substance: RIVAROXABAN
     Indication: PULMONARY EMBOLISM
     Route: 048
     Dates: start: 201402
  10. ALPRAZOLAM. [Concomitant]
     Active Substance: ALPRAZOLAM
     Indication: IRRITABLE BOWEL SYNDROME
     Route: 065
  11. PROMETHAZINE [Concomitant]
     Active Substance: PROMETHAZINE\PROMETHAZINE HYDROCHLORIDE
     Indication: NAUSEA
     Route: 065
     Dates: start: 2010
  12. HYDROMORPHONE HCL [Concomitant]
     Active Substance: HYDROMORPHONE HYDROCHLORIDE
     Indication: PAIN
     Route: 065
     Dates: start: 2011
  13. CARISOPRODOL. [Concomitant]
     Active Substance: CARISOPRODOL
     Indication: PAIN
     Route: 065
     Dates: start: 2005
  14. SPIRONOLACTONE. [Concomitant]
     Active Substance: SPIRONOLACTONE
     Indication: HYPERTENSION
     Route: 065
     Dates: start: 201506
  15. AMBIEN [Concomitant]
     Active Substance: ZOLPIDEM TARTRATE
     Indication: IRRITABLE BOWEL SYNDROME
     Dosage: ONCE DAILY AT BED TIME
     Route: 065
     Dates: start: 201507
  16. AMITRIPTYLINE [Concomitant]
     Active Substance: AMITRIPTYLINE
     Indication: ANXIETY
     Route: 065
     Dates: start: 2014, end: 201510
  17. ATENOLOL. [Concomitant]
     Active Substance: ATENOLOL
     Indication: HYPERTENSION
     Route: 065
     Dates: start: 2015

REACTIONS (3)
  - Hysterectomy [Unknown]
  - Transfusion [Unknown]
  - Mineral supplementation [Unknown]

NARRATIVE: CASE EVENT DATE: 201506
